FAERS Safety Report 24294668 (Version 2)
Quarter: 2024Q3

REPORT INFORMATION
  Report Type: Spontaneous
  Country: AU (occurrence: AU)
  Receive Date: 20240906
  Receipt Date: 20240911
  Transmission Date: 20241017
  Serious: Yes (Life-Threatening, Hospitalization, Other)
  Sender: BRISTOL MYERS SQUIBB
  Company Number: AU-BRISTOL-MYERS SQUIBB COMPANY-2024-136118

PATIENT
  Age: 59 Year
  Sex: Male
  Weight: 96.9 kg

DRUGS (2)
  1. SOTYKTU [Suspect]
     Active Substance: DEUCRAVACITINIB
     Indication: Systemic lupus erythematosus
     Route: 048
     Dates: start: 202402
  2. HYDROXYCHLOROQUINE [Concomitant]
     Active Substance: HYDROXYCHLOROQUINE
     Indication: Product used for unknown indication
     Dates: start: 202211, end: 202312

REACTIONS (2)
  - Lung cancer metastatic [Unknown]
  - Off label use [Unknown]

NARRATIVE: CASE EVENT DATE: 20240730
